FAERS Safety Report 9827491 (Version 1)
Quarter: 2014Q1

REPORT INFORMATION
  Report Type: Spontaneous
  Country: US (occurrence: None)
  Receive Date: 20140116
  Receipt Date: 20140116
  Transmission Date: 20141002
  Serious: Yes (Other)
  Sender: FDA-Public Use
  Company Number: None

PATIENT
  Age: 39 Year
  Sex: Female
  Weight: 62.6 kg

DRUGS (5)
  1. CHOLESTYRAMINE [Suspect]
     Indication: BILIARY TRACT DISORDER
     Dosage: 1 PACKET?2X/DAY?IN APPLEAUCE
     Dates: start: 20131212, end: 20130112
  2. BIRTH CONTROL [Concomitant]
  3. MULTI-VITAMIN [Concomitant]
  4. CALCIUM [Concomitant]
  5. PROTONIX [Concomitant]

REACTIONS (1)
  - Menstrual disorder [None]
